FAERS Safety Report 8956113 (Version 1)
Quarter: 2012Q4

REPORT INFORMATION
  Report Type: 
  Country: BR (occurrence: BR)
  Receive Date: 20121210
  Receipt Date: 20121210
  Transmission Date: 20130627
  Serious: Yes (Hospitalization)
  Sender: FDA-Public Use
  Company Number: BR-BRISTOL-MYERS SQUIBB COMPANY-17177288

PATIENT
  Age: 64 Year
  Sex: Male

DRUGS (1)
  1. MEGESTROL ACETATE [Suspect]
     Route: 048

REACTIONS (2)
  - Pancreatic carcinoma [Unknown]
  - Disease complication [None]
